FAERS Safety Report 5053209-0 (Version None)
Quarter: 2006Q3

REPORT INFORMATION
  Report Type: 
  Country: None (occurrence: None)
  Receive Date: 20060712
  Receipt Date: 20060628
  Transmission Date: 20061208
  Serious: Yes (Other)
  Sender: FDA-Public Use
  Company Number: 2005134664

PATIENT
  Sex: Female
  Weight: 108.8633 kg

DRUGS (3)
  1. CELEBREX [Suspect]
     Indication: OSTEOARTHRITIS
     Dosage: 400 MG (400 MG, 1 IN 1 D),
     Dates: start: 20000106
  2. BEXTRA [Suspect]
     Indication: ILL-DEFINED DISORDER
  3. VIOXX [Suspect]
     Indication: ILL-DEFINED DISORDER

REACTIONS (4)
  - CARDIOVASCULAR DISORDER [None]
  - CEREBRAL THROMBOSIS [None]
  - CEREBROVASCULAR ACCIDENT [None]
  - THROMBOSIS [None]
